FAERS Safety Report 8483618-9 (Version None)
Quarter: 2012Q3

REPORT INFORMATION
  Report Type: 
  Country: None (occurrence: None)
  Receive Date: 20120702
  Receipt Date: 20120625
  Transmission Date: 20120928
  Serious: Yes (Hospitalization)
  Sender: FDA-Public Use
  Company Number: US-RB-041865-12

PATIENT
  Age: 35 Year
  Sex: Female

DRUGS (2)
  1. OXYCODONE HCL [Suspect]
     Indication: PRODUCT USED FOR UNKNOWN INDICATION
     Dosage: 4 PILLS
     Route: 065
  2. SUBOXONE [Suspect]
     Indication: PRODUCT USED FOR UNKNOWN INDICATION
     Dosage: DOSE DETAILS NOT PROVIDED
     Route: 065

REACTIONS (3)
  - ASTHMA [None]
  - PNEUMONIA [None]
  - DRUG ABUSE [None]
